FAERS Safety Report 6951693-6 (Version None)
Quarter: 2010Q3

REPORT INFORMATION
  Report Type: 
  Country: None (occurrence: None)
  Receive Date: 20100828
  Receipt Date: 20100411
  Transmission Date: 20110219
  Serious: No
  Sender: FDA-Public Use
  Company Number: US-ABBOTT-10P-163-0637616-00

PATIENT
  Sex: Female
  Weight: 71.278 kg

DRUGS (5)
  1. NIASPAN [Suspect]
     Indication: DYSLIPIDAEMIA
  2. NIASPAN [Suspect]
  3. GLUCOPHAGE [Concomitant]
     Indication: PRODUCT USED FOR UNKNOWN INDICATION
     Route: 048
  4. ZESTRIL [Concomitant]
     Indication: PRODUCT USED FOR UNKNOWN INDICATION
     Route: 048
  5. ASPIRIN [Concomitant]
     Indication: PRODUCT USED FOR UNKNOWN INDICATION
     Route: 048

REACTIONS (2)
  - PRURITUS [None]
  - RASH ERYTHEMATOUS [None]
